FAERS Safety Report 11090637 (Version 1)
Quarter: 2015Q2

REPORT INFORMATION
  Report Type: Spontaneous
  Country: US (occurrence: None)
  Receive Date: 20150504
  Receipt Date: 20150504
  Transmission Date: 20150821
  Serious: Yes (Other)
  Sender: FDA-Public Use
  Company Number: None

PATIENT
  Age: 49 Year
  Sex: Female

DRUGS (1)
  1. COPAXONE [Suspect]
     Active Substance: GLATIRAMER ACETATE
     Indication: MULTIPLE SCLEROSIS
     Dosage: 40MG, INJECTABLE, TIW
     Dates: start: 20150401, end: 20150404

REACTIONS (4)
  - Rash [None]
  - Peripheral swelling [None]
  - Ear swelling [None]
  - Joint swelling [None]

NARRATIVE: CASE EVENT DATE: 20150404
